FAERS Safety Report 13338324 (Version 1)
Quarter: 2017Q1

REPORT INFORMATION
  Report Type: Spontaneous
  Country: US (occurrence: US)
  Receive Date: 20170315
  Receipt Date: 20170315
  Transmission Date: 20170428
  Serious: Yes (Other)
  Sender: FDA-Public Use
  Company Number: US-WEST-WARD PHARMACEUTICALS CORP.-US-H14001-17-00678

PATIENT
  Age: 8 Year

DRUGS (2)
  1. BALSALAZIDE [Suspect]
     Active Substance: BALSALAZIDE
     Indication: HAEMATOCHEZIA
  2. BALSALAZIDE [Suspect]
     Active Substance: BALSALAZIDE
     Indication: INFLAMMATORY BOWEL DISEASE
     Route: 065
     Dates: start: 2017, end: 2017

REACTIONS (3)
  - Condition aggravated [Recovering/Resolving]
  - Diarrhoea haemorrhagic [Recovering/Resolving]
  - Pain [Recovering/Resolving]

NARRATIVE: CASE EVENT DATE: 2017
